FAERS Safety Report 5069708-1 (Version None)
Quarter: 2006Q3

REPORT INFORMATION
  Report Type: 
  Country: None (occurrence: None)
  Receive Date: 20060714
  Receipt Date: 20060405
  Transmission Date: 20061208
  Serious: No
  Sender: FDA-Public Use
  Company Number: 2006SP001564

PATIENT
  Age: 37 Year
  Sex: Female
  Weight: 68.0396 kg

DRUGS (2)
  1. LUNESTA [Suspect]
     Indication: INSOMNIA
     Dosage: 2 MG;QW;ORAL
     Route: 048
     Dates: start: 20050401
  2. ORAL CONTRACEPTIVE NOS [Concomitant]

REACTIONS (2)
  - BLOOD COPPER INCREASED [None]
  - DYSGEUSIA [None]
